FAERS Safety Report 16409865 (Version 1)
Quarter: 2019Q2

REPORT INFORMATION
  Report Type: Report from Study
  Country: RO (occurrence: RO)
  Receive Date: 20190610
  Receipt Date: 20190610
  Transmission Date: 20190711
  Serious: Yes (Hospitalization)
  Sender: FDA-Public Use
  Company Number: RO-GILEAD-2019-0402225

PATIENT
  Age: 67 Year
  Sex: Female

DRUGS (3)
  1. METFOGAMMA [Concomitant]
     Active Substance: METFORMIN HYDROCHLORIDE
  2. LEDIPASVIR/SOFOSBUVIR [Suspect]
     Active Substance: LEDIPASVIR\SOFOSBUVIR
     Indication: CHRONIC HEPATITIS C
     Dosage: 1 DOSAGE FORM, QD
     Route: 048
     Dates: start: 20190314, end: 20190605
  3. NEBILET [Concomitant]
     Active Substance: NEBIVOLOL

REACTIONS (2)
  - Cardiac disorder [Not Recovered/Not Resolved]
  - Throat irritation [Not Recovered/Not Resolved]

NARRATIVE: CASE EVENT DATE: 201904
